FAERS Safety Report 5968449-3 (Version None)
Quarter: 2008Q4

REPORT INFORMATION
  Report Type: 
  Country: None (occurrence: None)
  Receive Date: 20081126
  Receipt Date: 20081118
  Transmission Date: 20090506
  Serious: Yes (Hospitalization)
  Sender: FDA-Public Use
  Company Number: JP-ASTRAZENECA-2008SE05470

PATIENT
  Age: 79 Year
  Sex: Male

DRUGS (3)
  1. BLOPRESS [Suspect]
     Indication: HYPERTENSION
     Route: 048
     Dates: start: 20040126, end: 20070506
  2. BLOPRESS [Suspect]
     Route: 048
     Dates: start: 20070507
  3. OTHER ANTINEOPLASTIC AGENTS [Suspect]
     Indication: PROSTATE CANCER
     Route: 048

REACTIONS (1)
  - CARDIAC FAILURE ACUTE [None]
